FAERS Safety Report 15422006 (Version 9)
Quarter: 2024Q2

REPORT INFORMATION
  Report Type: Spontaneous
  Country: BR (occurrence: BR)
  Receive Date: 20180924
  Receipt Date: 20240523
  Transmission Date: 20240716
  Serious: Yes (Hospitalization)
  Sender: FDA-Public Use
  Company Number: BR-BIOMARINAP-BR-2018-119994

PATIENT

DRUGS (3)
  1. NAGLAZYME [Suspect]
     Active Substance: GALSULFASE
     Indication: Mucopolysaccharidosis VI
     Dosage: UNK UNK, QW
     Route: 042
     Dates: start: 20080115
  2. ENALAPRIL [Concomitant]
     Active Substance: ENALAPRIL
     Indication: Blood pressure management
     Dosage: 2.5 MILLIGRAM, BID
  3. ENALAPRIL [Concomitant]
     Active Substance: ENALAPRIL
     Indication: Mitral valve prolapse

REACTIONS (9)
  - Cervical cord compression [Not Recovered/Not Resolved]
  - Hypersensitivity [Unknown]
  - Laryngeal oedema [Unknown]
  - Knee deformity [Recovering/Resolving]
  - Obstructive airways disorder [Unknown]
  - Infection [Unknown]
  - Body temperature increased [Unknown]
  - Arthralgia [Recovering/Resolving]
  - Product dose omission issue [Unknown]

NARRATIVE: CASE EVENT DATE: 20180817
